FAERS Safety Report 4360217-1 (Version None)
Quarter: 2004Q2

REPORT INFORMATION
  Report Type: 
  Country: None (occurrence: None)
  Receive Date: 20040513
  Receipt Date: 20040506
  Transmission Date: 20050107
  Serious: Yes (Hospitalization, Other)
  Sender: FDA-Public Use
  Company Number: 2004016191

PATIENT
  Sex: Female
  Weight: 87.0906 kg

DRUGS (4)
  1. NEURONTIN [Suspect]
     Indication: PAIN
     Dosage: 1800 MG (600 MG, TID), ORAL
     Route: 048
     Dates: end: 20040201
  2. DILTIAZEM HYDROCHLORIDE [Suspect]
  3. BENAZEPIL HYDROCHLORIDE (BENAZEPIL HYDROCHLORIDE) [Concomitant]
  4. HYDROCHLOROTHIAZIDE [Concomitant]

REACTIONS (15)
  - ABDOMINAL PAIN [None]
  - AGITATION [None]
  - ANXIETY [None]
  - CRYING [None]
  - DIABETES MELLITUS [None]
  - ECONOMIC PROBLEM [None]
  - FATIGUE [None]
  - HEPATIC CIRRHOSIS [None]
  - HEPATIC STEATOSIS [None]
  - HEPATOMEGALY [None]
  - INAPPROPRIATE AFFECT [None]
  - INTESTINAL OBSTRUCTION [None]
  - IRRITABILITY [None]
  - LIVER INDURATION [None]
  - TREMOR [None]
